FAERS Safety Report 4735466-0 (Version None)
Quarter: 2005Q3

REPORT INFORMATION
  Report Type: 
  Country: None (occurrence: None)
  Receive Date: 20050805
  Receipt Date: 20050311
  Transmission Date: 20060218
  Serious: Yes (Other)
  Sender: FDA-Public Use
  Company Number: 200512292GDDC

PATIENT
  Age: 36 Year
  Sex: Female

DRUGS (2)
  1. ARAVA [Suspect]
     Dosage: DOSE: UNK
     Dates: start: 20040301, end: 20050301
  2. DICLOFENAC [Concomitant]
     Dosage: DOSE: UNK

REACTIONS (2)
  - BLOOD BICARBONATE DECREASED [None]
  - RENAL TUBULAR ACIDOSIS [None]
